FAERS Safety Report 6060061-3 (Version None)
Quarter: 2009Q1

REPORT INFORMATION
  Report Type: 
  Country: None (occurrence: None)
  Receive Date: 20090127
  Receipt Date: 20081201
  Transmission Date: 20090719
  Serious: Yes (Hospitalization)
  Sender: FDA-Public Use
  Company Number: FR-GUERBET-20080146

PATIENT
  Age: 35 Year
  Sex: Male

DRUGS (1)
  1. HEXABRIX [Suspect]
     Indication: ARTHROGRAM
     Dosage: DOSAGE: 10, ML MILLILITRE (S), 2, 1, TOTAL INTRA-ARTICULAR
     Route: 014
     Dates: start: 20081118, end: 20081118

REACTIONS (7)
  - ANGIOEDEMA [None]
  - CONDITION AGGRAVATED [None]
  - CONJUNCTIVITIS [None]
  - DYSPNOEA [None]
  - ERYTHEMA [None]
  - LARYNGEAL OEDEMA [None]
  - RHINITIS [None]
